FAERS Safety Report 16176891 (Version 1)
Quarter: 2019Q2

REPORT INFORMATION
  Report Type: Spontaneous
  Country: FR (occurrence: FR)
  Receive Date: 20190409
  Receipt Date: 20190409
  Transmission Date: 20190711
  Serious: Yes (Other)
  Sender: FDA-Public Use
  Company Number: FR-TEVA-2019-FR-1034862

PATIENT
  Age: 71 Year
  Sex: Female
  Weight: 90 kg

DRUGS (10)
  1. BROMAZEPAM [Concomitant]
     Active Substance: BROMAZEPAM
  2. DAFALGAN [Concomitant]
     Active Substance: ACETAMINOPHEN
  3. VENLAFAXINE [Concomitant]
     Active Substance: VENLAFAXINE HYDROCHLORIDE
  4. LANSOPRAZOLE. [Suspect]
     Active Substance: LANSOPRAZOLE
     Indication: GASTROOESOPHAGEAL REFLUX DISEASE
     Dosage: 15 MILLIGRAM DAILY;
     Route: 048
     Dates: start: 20190127, end: 20190222
  5. ATORVASTATINE [Concomitant]
     Active Substance: ATORVASTATIN
  6. LAMALINE (ACETAMINOPHEN\BELLADONNA LEAF\CAFFEINE\OPIUM) [Concomitant]
     Active Substance: ACETAMINOPHEN\BELLADONNA LEAF\CAFFEINE\OPIUM
  7. ZOPICLONE [Concomitant]
     Active Substance: ZOPICLONE
  8. LOVENOX [Concomitant]
     Active Substance: ENOXAPARIN SODIUM
  9. ENALAPRIL/LERCANIDIPINE BIOGARAN 20 MG/10 MG, COMPRIM? PELLICUL? [Concomitant]
  10. ALLOPURINOL. [Concomitant]
     Active Substance: ALLOPURINOL

REACTIONS (1)
  - Colitis microscopic [Recovered/Resolved]

NARRATIVE: CASE EVENT DATE: 20190130
